FAERS Safety Report 7704346-0 (Version None)
Quarter: 2011Q3

REPORT INFORMATION
  Report Type: 
  Country: None (occurrence: None)
  Receive Date: 20110823
  Receipt Date: 20110715
  Transmission Date: 20111222
  Serious: Yes (Hospitalization)
  Sender: FDA-Public Use
  Company Number: RU-AMGEN-RUSCT2011024479

PATIENT
  Age: 45 Year
  Sex: Male

DRUGS (4)
  1. CALCIUM CARBONATE [Concomitant]
     Dosage: 5 G, UNK
     Dates: start: 20091209
  2. CALCITRIOL [Concomitant]
     Dosage: UNK
     Dates: start: 20110103
  3. CINACALCET HYDROCHLORIDE [Suspect]
     Indication: HYPERPARATHYROIDISM SECONDARY
     Dosage: UNK
     Dates: start: 20061115
  4. PLACEBO [Suspect]
     Indication: HYPERPARATHYROIDISM SECONDARY
     Dosage: UNK
     Dates: start: 20061115

REACTIONS (2)
  - ARTERIOVENOUS FISTULA SITE COMPLICATION [None]
  - HYPERPARATHYROIDISM SECONDARY [None]
